FAERS Safety Report 5113788-1 (Version None)
Quarter: 2006Q3

REPORT INFORMATION
  Report Type: 
  Country: None (occurrence: None)
  Receive Date: 20060920
  Receipt Date: 20060907
  Transmission Date: 20061208
  Serious: Yes (Hospitalization)
  Sender: FDA-Public Use
  Company Number: 2006081600

PATIENT
  Age: 78 Year
  Sex: Male
  Weight: 72 kg

DRUGS (7)
  1. SUTENT [Suspect]
     Indication: RENAL CELL CARCINOMA STAGE UNSPECIFIED
     Dosage: 50 MG (50 MG, 1 IN 1 D), ORAL
     Route: 048
     Dates: start: 20060609, end: 20060622
  2. SUTENT [Suspect]
     Indication: RENAL CELL CARCINOMA STAGE UNSPECIFIED
     Dosage: 50 MG (50 MG, 1 IN 1 D), ORAL
     Route: 048
     Dates: start: 20060705
  3. FLUDROCORTISONE ACETATE [Concomitant]
  4. HYDROCORTISONE [Concomitant]
  5. ASPIRIN [Concomitant]
  6. ATENOLOL [Concomitant]
  7. ATORVASTATIN CALCIUM [Concomitant]

REACTIONS (6)
  - CHILLS [None]
  - DEHYDRATION [None]
  - DIARRHOEA [None]
  - LETHARGY [None]
  - MALAISE [None]
  - VOMITING [None]
